FAERS Safety Report 6317089-5 (Version None)
Quarter: 2009Q3

REPORT INFORMATION
  Report Type: 
  Country: None (occurrence: None)
  Receive Date: 20090820
  Receipt Date: 20090814
  Transmission Date: 20100115
  Serious: Yes (Hospitalization)
  Sender: FDA-Public Use
  Company Number: JP-SANOFI-SYNTHELABO-F01200900697

PATIENT
  Sex: Male
  Weight: 65.9 kg

DRUGS (14)
  1. PROMAC/JPN/ [Concomitant]
     Indication: DYSGEUSIA
     Dosage: UNK
     Route: 065
     Dates: start: 20090508
  2. PARIET [Concomitant]
     Dosage: UNK
     Route: 065
     Dates: start: 20090309
  3. MYSER [Concomitant]
     Indication: RASH
     Dosage: UNK
     Route: 065
     Dates: start: 20090109
  4. UREPEARL [Concomitant]
     Indication: RASH
     Dosage: UNK
     Route: 065
     Dates: start: 20080723
  5. HIRUDOID [Concomitant]
     Dosage: UNK
     Route: 065
     Dates: start: 20080723
  6. AZUNOL [Concomitant]
     Indication: PROPHYLAXIS
     Dosage: UNK
     Route: 065
     Dates: start: 20080722
  7. ADALAT CC [Concomitant]
     Indication: BLOOD PRESSURE
     Dosage: UNK
     Route: 065
     Dates: start: 20080705
  8. BLOPRESS [Concomitant]
     Indication: BLOOD PRESSURE
     Dosage: UNK
     Route: 065
     Dates: start: 20080527
  9. RENIVACE [Concomitant]
     Indication: BLOOD PRESSURE
     Dosage: UNK
     Route: 065
     Dates: start: 20080519
  10. FOLINIC ACID [Suspect]
     Indication: COLORECTAL CANCER
     Route: 041
     Dates: start: 20090626, end: 20090626
  11. FLUOROURACIL [Suspect]
     Indication: COLORECTAL CANCER
     Route: 040
     Dates: start: 20090626, end: 20090626
  12. FLUOROURACIL [Suspect]
     Route: 041
     Dates: start: 20090626, end: 20090628
  13. SUNITINIB [Suspect]
     Indication: COLORECTAL CANCER
     Dosage: 4 WEEKS ON , 2 WEEKS OFF
     Route: 048
     Dates: start: 20080612, end: 20090630
  14. OXALIPLATIN [Suspect]
     Indication: COLORECTAL CANCER
     Route: 041
     Dates: start: 20090626, end: 20090626

REACTIONS (1)
  - CEREBRAL INFARCTION [None]
